FAERS Safety Report 7776671-9 (Version None)
Quarter: 2011Q3

REPORT INFORMATION
  Report Type: 
  Country: None (occurrence: None)
  Receive Date: 20110926
  Receipt Date: 20101207
  Transmission Date: 20111222
  Serious: Yes (Hospitalization, Other)
  Sender: FDA-Public Use
  Company Number: US-BAYER-200937549NA

PATIENT
  Age: 42 Year
  Sex: Female

DRUGS (2)
  1. BETASERON [Suspect]
     Indication: MULTIPLE SCLEROSIS
     Dosage: BETAJECT
     Route: 058
     Dates: start: 20090617
  2. CATAFLAM [Concomitant]
     Indication: PAIN

REACTIONS (5)
  - DEHYDRATION [None]
  - PAIN IN EXTREMITY [None]
  - DEPRESSION [None]
  - PAIN [None]
  - DIARRHOEA [None]
